FAERS Safety Report 11882004 (Version 1)
Quarter: 2015Q4

REPORT INFORMATION
  Report Type: Spontaneous
  Country: US (occurrence: None)
  Receive Date: 20151230
  Receipt Date: 20151230
  Transmission Date: 20160305
  Serious: No
  Sender: FDA-Public Use
  Company Number: None

PATIENT
  Age: 39 Year
  Sex: Male
  Weight: 88.45 kg

DRUGS (8)
  1. CAPTOPRIL. [Concomitant]
     Active Substance: CAPTOPRIL
  2. GLUCOSAMINE [Concomitant]
     Active Substance: GLUCOSAMINE
  3. FISH OIL [Concomitant]
     Active Substance: FISH OIL
  4. COQ 10 [Concomitant]
     Active Substance: UBIDECARENONE
  5. PROTEIN [Concomitant]
     Active Substance: PROTEIN
  6. MUCINEX FAST-MAX COLD, FLU AND SORE THROAT [Suspect]
     Active Substance: ACETAMINOPHEN\DEXTROMETHORPHAN HYDROBROMIDE\GUAIFENESIN\PHENYLEPHRINE HYDROCHLORIDE
     Indication: NASOPHARYNGITIS
     Dosage: 2 LIQUID GEL CAPS  THREE TIMES DAIY TAKEN BY MOUTH
     Route: 048
     Dates: start: 20151229, end: 20151229
  7. OMEPRAZOLE. [Concomitant]
     Active Substance: OMEPRAZOLE
  8. MUCINEX FAST-MAX COLD, FLU AND SORE THROAT [Suspect]
     Active Substance: ACETAMINOPHEN\DEXTROMETHORPHAN HYDROBROMIDE\GUAIFENESIN\PHENYLEPHRINE HYDROCHLORIDE
     Indication: OROPHARYNGEAL PAIN
     Dosage: 2 LIQUID GEL CAPS  THREE TIMES DAIY TAKEN BY MOUTH
     Route: 048
     Dates: start: 20151229, end: 20151229

REACTIONS (5)
  - Rash generalised [None]
  - Local swelling [None]
  - Throat irritation [None]
  - Pruritus [None]
  - Swelling face [None]

NARRATIVE: CASE EVENT DATE: 20151229
